FAERS Safety Report 22794248 (Version 4)
Quarter: 2023Q4

REPORT INFORMATION
  Report Type: Spontaneous
  Country: US (occurrence: US)
  Receive Date: 20230807
  Receipt Date: 20231106
  Transmission Date: 20240109
  Serious: No
  Sender: FDA-Public Use
  Company Number: US-PFIZER INC-PV202300134188

PATIENT

DRUGS (1)
  1. ESTRING [Suspect]
     Active Substance: ESTRADIOL
     Dosage: UNK

REACTIONS (5)
  - Hypoacusis [Unknown]
  - Visual impairment [Unknown]
  - Confusional state [Unknown]
  - Arthritis [Unknown]
  - Dysgraphia [Unknown]
